FAERS Safety Report 19990450 (Version 1)
Quarter: 2021Q4

REPORT INFORMATION
  Report Type: Spontaneous
  Country: US (occurrence: US)
  Receive Date: 20211021
  Receipt Date: 20211021
  Transmission Date: 20220303
  Serious: Yes (Hospitalization)
  Sender: FDA-Public Use
  Company Number: None

PATIENT
  Sex: Female

DRUGS (19)
  1. GAMMAGARD LIQUID [Suspect]
     Active Substance: HUMAN IMMUNOGLOBULIN G
     Dosage: ?          OTHER STRENGTH:30GM/300ML;OTHER DOSE:30GM/300ML;
     Route: 042
  2. DIPHENHYDRAMINE HYDROCHLORIDE [Concomitant]
     Active Substance: DIPHENHYDRAMINE HYDROCHLORIDE
  3. ENALBEX TAB [Concomitant]
  4. EPINEPHRINE [Concomitant]
     Active Substance: EPINEPHRINE
  5. FLUCONAZOLE TAB [Concomitant]
  6. HEPARIN SODIUM LOCK FLUSH [Concomitant]
  7. LIDOCAINE\PRILOCAINE [Concomitant]
     Active Substance: LIDOCAINE\PRILOCAINE
  8. MELOXICAM TAB [Concomitant]
  9. MONOJECT PHARMA GRADE FLU [Concomitant]
  10. MONOJECT PREFILL ADVANCED [Concomitant]
  11. MUCINEX TAB [Concomitant]
  12. NORMAL SALINE I.V. FLUSH [Concomitant]
  13. PLAVIX TAB [Concomitant]
  14. REPATHA [Concomitant]
     Active Substance: EVOLOCUMAB
  15. SODIUM CHLORIDE [Concomitant]
     Active Substance: SODIUM CHLORIDE
  16. SODIUM CHLORIDE [Concomitant]
     Active Substance: SODIUM CHLORIDE
  17. SODIUM CHLORIDE [Concomitant]
     Active Substance: SODIUM CHLORIDE
  18. TOPAMAX TAB [Concomitant]
  19. ZYRTEC ALLGY TAB [Concomitant]

REACTIONS (7)
  - Cerebrovascular accident [None]
  - Drooling [None]
  - Facial paralysis [None]
  - Fatigue [None]
  - Feeling abnormal [None]
  - Abdominal pain upper [None]
  - Headache [None]
